FAERS Safety Report 5851128-0 (Version None)
Quarter: 2008Q3

REPORT INFORMATION
  Report Type: 
  Country: None (occurrence: None)
  Receive Date: 20080820
  Receipt Date: 20080813
  Transmission Date: 20090109
  Serious: Yes (Hospitalization)
  Sender: FDA-Public Use
  Company Number: B0530660A

PATIENT
  Age: 85 Year
  Sex: Female

DRUGS (5)
  1. VALTREX [Suspect]
     Indication: HERPES ZOSTER
     Dosage: 1000MG THREE TIMES PER DAY
     Route: 048
     Dates: start: 20080702, end: 20080704
  2. LANSOPRAZOLE [Concomitant]
     Indication: GASTRITIS
     Dosage: 15MG PER DAY
     Route: 048
  3. UNKNOWN [Concomitant]
     Indication: HYPERTENSION
     Dosage: 2MG PER DAY
     Route: 048
  4. ALOCHINON [Concomitant]
     Indication: HYPERTENSION
     Route: 048
  5. BASEN [Concomitant]
     Indication: DIABETES MELLITUS
     Dosage: .9MG PER DAY
     Route: 048

REACTIONS (3)
  - AZOTAEMIA [None]
  - MALAISE [None]
  - RENAL FAILURE ACUTE [None]
